FAERS Safety Report 25816664 (Version 1)
Quarter: 2025Q3

REPORT INFORMATION
  Report Type: Spontaneous
  Country: US (occurrence: US)
  Receive Date: 20250918
  Receipt Date: 20250918
  Transmission Date: 20251021
  Serious: Yes (Hospitalization, Other)
  Sender: ALEMBIC
  Company Number: US-ALEMBIC PHARMACUETICALS LIMITED-2025SCAL001187

PATIENT

DRUGS (2)
  1. LAMOTRIGINE [Suspect]
     Active Substance: LAMOTRIGINE
     Indication: Epilepsy
     Route: 065
  2. BRIVARACETAM [Concomitant]
     Active Substance: BRIVARACETAM
     Indication: Epilepsy
     Route: 065

REACTIONS (13)
  - Toxicity to various agents [Unknown]
  - Encephalopathy [Unknown]
  - Gaze palsy [Unknown]
  - Drug level increased [Unknown]
  - Seizure [Unknown]
  - Ataxia [Unknown]
  - Vomiting [Unknown]
  - Nausea [Unknown]
  - Fall [Unknown]
  - Balance disorder [Unknown]
  - Dizziness [Unknown]
  - Nystagmus [Unknown]
  - Diplopia [Unknown]
